FAERS Safety Report 5819350-7 (Version None)
Quarter: 2008Q3

REPORT INFORMATION
  Report Type: 
  Country: None (occurrence: None)
  Receive Date: 20080723
  Receipt Date: 20080225
  Transmission Date: 20090109
  Serious: No
  Sender: FDA-Public Use
  Company Number: US-BAYER-200810905BCC

PATIENT
  Age: 52 Year
  Sex: Female
  Weight: 68 kg

DRUGS (5)
  1. ALEVE [Suspect]
     Indication: MIGRAINE
     Route: 048
     Dates: start: 19980101
  2. FOSAMAX [Concomitant]
  3. HYDROCHLOROTHIAZIDE [Concomitant]
  4. PROPECIA [Concomitant]
  5. SPIRONOLACTONE [Concomitant]

REACTIONS (1)
  - MIGRAINE [None]
